FAERS Safety Report 4290473-X (Version None)
Quarter: 2004Q1

REPORT INFORMATION
  Report Type: 
  Country: None (occurrence: None)
  Receive Date: 20040209
  Receipt Date: 20040205
  Transmission Date: 20041129
  Serious: Yes (Death, Hospitalization, Other)
  Sender: FDA-Public Use
  Company Number: 200313458GDS

PATIENT
  Age: 63 Year
  Sex: Male
  Weight: 57 kg

DRUGS (8)
  1. CIPROFLOXACIN [Suspect]
     Indication: PNEUMONIA
     Dosage: 600 MG, TOTAL DAILY, INTRAVENOUS
     Route: 042
     Dates: start: 20030121, end: 20030204
  2. CIPROFLOXACIN [Suspect]
     Indication: PNEUMONIA PNEUMOCOCCAL
     Dosage: 600 MG, TOTAL DAILY, INTRAVENOUS
     Route: 042
     Dates: start: 20030121, end: 20030204
  3. CIPROFLOXACIN [Suspect]
     Indication: STENOTROPHOMONAS INFECTION
     Dosage: 600 MG, TOTAL DAILY, INTRAVENOUS
     Route: 042
     Dates: start: 20030121, end: 20030204
  4. INOVAN [Concomitant]
  5. DIPRIVAN [Concomitant]
  6. NOR-ADRENALIN [Concomitant]
  7. FUTHAN [Concomitant]
  8. HANP [Concomitant]

REACTIONS (14)
  - ACUTE RESPIRATORY DISTRESS SYNDROME [None]
  - C-REACTIVE PROTEIN INCREASED [None]
  - DISEASE PROGRESSION [None]
  - ENDOTOXIC SHOCK [None]
  - HAEMODIALYSIS [None]
  - HAEMODYNAMIC INSTABILITY [None]
  - HYPERCAPNIA [None]
  - HYPERKALAEMIA [None]
  - HYPOXIA [None]
  - LABORATORY TEST ABNORMAL [None]
  - METABOLIC ACIDOSIS [None]
  - PNEUMONIA [None]
  - PULMONARY FIBROSIS [None]
  - PULMONARY FUNCTION TEST DECREASED [None]
